FAERS Safety Report 6391092-1 (Version None)
Quarter: 2009Q4

REPORT INFORMATION
  Report Type: 
  Country: None (occurrence: None)
  Receive Date: 20091007
  Receipt Date: 20091006
  Transmission Date: 20100525
  Serious: Yes (Hospitalization)
  Sender: FDA-Public Use
  Company Number: CA-JNJFOC-20090907844

PATIENT

DRUGS (6)
  1. USTEKINUMAB [Suspect]
     Route: 042
  2. USTEKINUMAB [Suspect]
     Indication: CROHN'S DISEASE
     Route: 042
  3. PLACEBO [Suspect]
     Indication: CROHN'S DISEASE
     Route: 058
  4. CIPROFLOXACIN HYDROCHLORIDE [Concomitant]
     Indication: CROHN'S DISEASE
     Route: 048
  5. FLAGYL [Concomitant]
     Indication: CROHN'S DISEASE
     Route: 048
  6. PERCOCET [Concomitant]
     Indication: PROCTALGIA
     Route: 048

REACTIONS (1)
  - PANCREATITIS ACUTE [None]
